FAERS Safety Report 10502991 (Version 1)
Quarter: 2014Q4

REPORT INFORMATION
  Report Type: Report from Study
  Country: FR (occurrence: FR)
  Receive Date: 20141007
  Receipt Date: 20141007
  Transmission Date: 20150528
  Serious: Yes (Death)
  Sender: FDA-Public Use
  Company Number: FR-SA-2014SA133942

PATIENT
  Age: 55 Year
  Sex: Male

DRUGS (1)
  1. CAMPATH [Suspect]
     Active Substance: ALEMTUZUMAB
     Indication: CHRONIC LYMPHOCYTIC LEUKAEMIA
     Route: 065
     Dates: start: 2014, end: 20140725

REACTIONS (1)
  - Death [Fatal]

NARRATIVE: CASE EVENT DATE: 20140725
